FAERS Safety Report 5390120-X (Version None)
Quarter: 2007Q3

REPORT INFORMATION
  Report Type: 
  Country: None (occurrence: None)
  Receive Date: 20070718
  Receipt Date: 20070709
  Transmission Date: 20080115
  Serious: Yes (Other)
  Sender: FDA-Public Use
  Company Number: B0479551A

PATIENT
  Age: 26 Year
  Sex: Female
  Weight: 51 kg

DRUGS (2)
  1. ZYBAN [Suspect]
     Indication: SMOKING CESSATION THERAPY
     Dosage: 150MG TWICE PER DAY
     Route: 048
     Dates: start: 20070607, end: 20070618
  2. YASMIN [Concomitant]
     Indication: CONTRACEPTION
     Route: 048

REACTIONS (9)
  - DECREASED APPETITE [None]
  - DISTURBANCE IN ATTENTION [None]
  - HYPERHIDROSIS [None]
  - INSOMNIA [None]
  - MANIA [None]
  - SUICIDAL IDEATION [None]
  - TREMOR [None]
  - VISUAL DISTURBANCE [None]
  - WEIGHT DECREASED [None]
